FAERS Safety Report 16408852 (Version 4)
Quarter: 2020Q2

REPORT INFORMATION
  Report Type: Report from Study
  Country: CA (occurrence: CA)
  Receive Date: 20190610
  Receipt Date: 20200405
  Transmission Date: 20200713
  Serious: Yes (Life-Threatening)
  Sender: FDA-Public Use
  Company Number: PHHY2018CA016510

PATIENT
  Sex: Male

DRUGS (4)
  1. COSENTYX [Suspect]
     Active Substance: SECUKINUMAB
     Dosage: UNK
     Route: 065
     Dates: start: 20180311
  2. COSENTYX [Suspect]
     Active Substance: SECUKINUMAB
     Indication: PSORIASIS
     Dosage: 300 MG, QW (SENSOREADY PEN)
     Route: 058
     Dates: start: 20180115
  3. COSENTYX [Suspect]
     Active Substance: SECUKINUMAB
     Dosage: 300 MG, QMO
     Route: 058
     Dates: start: 20181011
  4. COSENTYX [Suspect]
     Active Substance: SECUKINUMAB
     Dosage: 300 MG, QMO
     Route: 058
     Dates: start: 20190513

REACTIONS (20)
  - Suicidal ideation [Unknown]
  - Palpitations [Unknown]
  - Nasopharyngitis [Unknown]
  - Thinking abnormal [Unknown]
  - Insomnia [Unknown]
  - Abnormal dreams [Unknown]
  - Fatigue [Unknown]
  - Abdominal discomfort [Unknown]
  - Injection site pain [Unknown]
  - Pruritus [Recovered/Resolved]
  - Anxiety [Unknown]
  - Discomfort [Unknown]
  - Abnormal behaviour [Unknown]
  - Anger [Unknown]
  - Therapeutic product effect incomplete [Unknown]
  - Aggression [Unknown]
  - Pruritus [Not Recovered/Not Resolved]
  - Nightmare [Unknown]
  - Mood altered [Unknown]
  - Dizziness [Recovered/Resolved]
